FAERS Safety Report 9867916 (Version 4)
Quarter: 2014Q2

REPORT INFORMATION
  Report Type: Report from Study
  Country: JP (occurrence: JP)
  Receive Date: 20140204
  Receipt Date: 20140618
  Transmission Date: 20141212
  Serious: Yes (Hospitalization)
  Sender: FDA-Public Use
  Company Number: PHHY2013JP146156

PATIENT
  Age: 65 Year
  Sex: Female

DRUGS (16)
  1. FTY 720 [Suspect]
     Indication: MULTIPLE SCLEROSIS
     Dosage: 0.5 MG, QD
     Route: 048
     Dates: start: 20121107, end: 20121220
  2. FTY 720 [Suspect]
     Dosage: 2 MG, QW
     Route: 048
     Dates: start: 20121221, end: 20130108
  3. FTY 720 [Suspect]
     Dosage: 0.5 MG, QD
     Route: 048
     Dates: start: 20130306, end: 20130610
  4. BETAFERON [Concomitant]
     Route: 058
     Dates: start: 20071129, end: 20121107
  5. INTERFERON BETA 1B [Concomitant]
  6. SOL-MELCORT [Concomitant]
     Dosage: 1000 MG, UNK
     Route: 051
     Dates: start: 20130107, end: 20130109
  7. SOL-MELCORT [Concomitant]
     Dosage: 1000 MG, UNK
     Route: 051
     Dates: start: 20130610, end: 20130612
  8. OLMETEC [Concomitant]
     Dosage: 10 MG, UNK
     Route: 048
     Dates: start: 20130503
  9. PREDNISOLONE [Concomitant]
     Dosage: 40 MG, UNK
     Route: 048
     Dates: start: 20130110, end: 20130117
  10. PREDNISOLONE [Concomitant]
     Dosage: 60 MG, UNK
     Route: 048
     Dates: start: 20130118, end: 20130124
  11. PREDNISOLONE [Concomitant]
     Route: 048
     Dates: start: 20130613
  12. GASTER D [Concomitant]
     Dosage: 40 MG, UNK
     Route: 048
  13. ACTONEL [Concomitant]
     Dosage: 2.5 MG, UNK
     Route: 048
  14. LIVALO [Concomitant]
     Dosage: 2 MG, UNK
     Route: 048
  15. LIVALO [Concomitant]
     Dosage: 1 MG, UNK
  16. ACECOL [Concomitant]
     Dosage: 2 MG, UNK
     Route: 048
     Dates: end: 20130502

REACTIONS (3)
  - Neurological decompensation [Recovered/Resolved]
  - Epilepsy [Recovered/Resolved]
  - Multiple sclerosis relapse [Recovered/Resolved]
